FAERS Safety Report 16072269 (Version 2)
Quarter: 2020Q4

REPORT INFORMATION
  Report Type: Report from Study
  Country: JP (occurrence: JP)
  Receive Date: 20190314
  Receipt Date: 20201229
  Transmission Date: 20210113
  Serious: Yes (Death)
  Sender: FDA-Public Use
  Company Number: PHHY2013JP173867

PATIENT
  Age: 51 Year
  Sex: Male

DRUGS (13)
  1. METHYCOBAL [Concomitant]
     Active Substance: METHYLCOBALAMIN
     Indication: PRODUCT USED FOR UNKNOWN INDICATION
     Route: 065
  2. LYRICA [Concomitant]
     Active Substance: PREGABALIN
     Indication: PRODUCT USED FOR UNKNOWN INDICATION
     Route: 048
  3. RIVOTRIL [Concomitant]
     Active Substance: CLONAZEPAM
     Indication: PRODUCT USED FOR UNKNOWN INDICATION
     Route: 048
  4. FAMOTIDINE. [Concomitant]
     Active Substance: FAMOTIDINE
     Indication: PRODUCT USED FOR UNKNOWN INDICATION
     Route: 048
  5. MEIACT [Concomitant]
     Active Substance: CEFDITOREN PIVOXIL
     Indication: POSTOPERATIVE WOUND INFECTION
     Route: 048
  6. VOTRIENT [Suspect]
     Active Substance: PAZOPANIB HYDROCHLORIDE
     Indication: MALIGNANT FIBROUS HISTIOCYTOMA
     Dosage: 200 MG, QD
     Route: 048
     Dates: start: 20130408, end: 20130421
  7. OXYCONTIN [Concomitant]
     Active Substance: OXYCODONE HYDROCHLORIDE
     Indication: PRODUCT USED FOR UNKNOWN INDICATION
     Route: 048
  8. VOTRIENT [Suspect]
     Active Substance: PAZOPANIB HYDROCHLORIDE
     Indication: MALIGNANT FIBROUS HISTIOCYTOMA
     Dosage: 400 MG, QOD
     Route: 048
     Dates: start: 20131130
  9. VOTRIENT [Suspect]
     Active Substance: PAZOPANIB HYDROCHLORIDE
     Indication: MALIGNANT FIBROUS HISTIOCYTOMA
     Dosage: 800 MG, QD
     Route: 048
     Dates: start: 20130318, end: 20130331
  10. VOTRIENT [Suspect]
     Active Substance: PAZOPANIB HYDROCHLORIDE
     Indication: MALIGNANT FIBROUS HISTIOCYTOMA
     Dosage: 400 MG, QOD
     Route: 048
     Dates: start: 20131107, end: 20131126
  11. LOXOPROFEN [Concomitant]
     Active Substance: LOXOPROFEN
     Indication: PRODUCT USED FOR UNKNOWN INDICATION
     Route: 065
  12. VOTRIENT [Suspect]
     Active Substance: PAZOPANIB HYDROCHLORIDE
     Indication: MALIGNANT FIBROUS HISTIOCYTOMA
     Dosage: 800 MG, QD
     Route: 048
     Dates: start: 20130215, end: 20130228
  13. VOTRIENT [Suspect]
     Active Substance: PAZOPANIB HYDROCHLORIDE
     Indication: MALIGNANT FIBROUS HISTIOCYTOMA
     Dosage: 200 MG, QD
     Route: 048
     Dates: start: 20130520, end: 20130707

REACTIONS (3)
  - Impaired healing [Fatal]
  - Palmar-plantar erythrodysaesthesia syndrome [Recovered/Resolved]
  - Post procedural haemorrhage [Fatal]

NARRATIVE: CASE EVENT DATE: 20130326
